FAERS Safety Report 8022386-1 (Version None)
Quarter: 2012Q1

REPORT INFORMATION
  Report Type: 
  Country: None (occurrence: None)
  Receive Date: 20120104
  Receipt Date: 20110830
  Transmission Date: 20120608
  Serious: No
  Sender: FDA-Public Use
  Company Number: US-MYLANLABS-2011S1018338

PATIENT
  Age: 76 Year
  Sex: Female

DRUGS (5)
  1. OMEGA 3 /00931501/ [Concomitant]
     Indication: VITAMIN SUPPLEMENTATION
     Route: 048
  2. BALSALAZIDE DISODIUM [Suspect]
     Indication: COLITIS
     Route: 048
     Dates: start: 20100701, end: 20110201
  3. BALSALAZIDE DISODIUM [Suspect]
     Route: 048
     Dates: start: 20110201
  4. CALCIUM PLUS D3 [Concomitant]
     Indication: VITAMIN SUPPLEMENTATION
     Route: 048
  5. INDERAL [Concomitant]
     Indication: MIGRAINE
     Route: 048

REACTIONS (3)
  - PRURITUS [None]
  - FATIGUE [None]
  - URTICARIA [None]
